FAERS Safety Report 16650546 (Version 1)
Quarter: 2019Q3

REPORT INFORMATION
  Report Type: Report from Study
  Country: CA (occurrence: CA)
  Receive Date: 20190731
  Receipt Date: 20190731
  Transmission Date: 20191004
  Serious: Yes (Hospitalization, Other)
  Sender: FDA-Public Use
  Company Number: CA-SA-2017SA062637

PATIENT
  Age: 48 Year
  Sex: Female

DRUGS (14)
  1. METHYLPREDNISOLONE. [Concomitant]
     Active Substance: METHYLPREDNISOLONE
     Indication: PREMEDICATION
     Dosage: 1 G,UNK
     Route: 042
     Dates: start: 20170404, end: 20170406
  2. ACICLOVIR [Concomitant]
     Active Substance: ACYCLOVIR
     Indication: PREMEDICATION
     Dosage: 200 MG,BID
     Route: 048
     Dates: start: 20170404
  3. PREDNISONE. [Suspect]
     Active Substance: PREDNISONE
  4. BENADRYL [Concomitant]
     Active Substance: DIPHENHYDRAMINE HYDROCHLORIDE
     Indication: PREMEDICATION
     Dosage: 50 MG,UNK
     Route: 048
     Dates: start: 20170404, end: 20170406
  5. DEXEDRINE [Concomitant]
     Active Substance: DEXTROAMPHETAMINE SULFATE
     Dosage: UNK
     Route: 048
  6. CALCIUM [Concomitant]
     Active Substance: CALCIUM
     Dosage: UNK UNK,QD
     Route: 048
  7. RANITIDINE. [Concomitant]
     Active Substance: RANITIDINE
     Indication: PREMEDICATION
     Dosage: 150 MG,UNK
     Route: 048
     Dates: start: 20170404, end: 20170406
  8. DEPO-PROVERA [Concomitant]
     Active Substance: MEDROXYPROGESTERONE ACETATE
     Indication: CONTRACEPTION
     Dosage: UNK
     Route: 030
  9. ALEMTUZUMAB [Suspect]
     Active Substance: ALEMTUZUMAB
     Indication: RELAPSING-REMITTING MULTIPLE SCLEROSIS
     Dosage: 12 MG,QD
     Route: 041
     Dates: start: 20170404, end: 20170406
  10. GRAVOL [Concomitant]
     Active Substance: DIMENHYDRINATE
     Indication: PREMEDICATION
     Dosage: 50 MG,UNK
     Route: 048
     Dates: start: 20170404, end: 20170406
  11. MULTIVITAMINS [VITAMINS NOS] [Concomitant]
     Active Substance: VITAMINS
     Route: 048
  12. PARACETAMOL [Concomitant]
     Active Substance: ACETAMINOPHEN
     Indication: PREMEDICATION
     Dosage: UNK UNK,PRN
     Route: 048
     Dates: start: 20170404
  13. BACLOFEN. [Concomitant]
     Active Substance: BACLOFEN
     Dosage: UNK UNK,QD
     Route: 048
  14. ERGOCALCIFEROL. [Concomitant]
     Active Substance: ERGOCALCIFEROL
     Dosage: UNK UNK,QD
     Route: 048

REACTIONS (55)
  - Splenectomy [Not Recovered/Not Resolved]
  - Malaise [Not Recovered/Not Resolved]
  - Neck pain [Recovered/Resolved]
  - Protein urine present [Recovered/Resolved]
  - Infusion site oedema [Recovered/Resolved]
  - Pollakiuria [Recovered/Resolved]
  - Anti-thyroid antibody positive [Recovered/Resolved]
  - Blood creatinine increased [Unknown]
  - Poor quality sleep [Recovered/Resolved]
  - Haematocrit decreased [Recovered/Resolved]
  - Fatigue [Not Recovered/Not Resolved]
  - Dyspnoea [Unknown]
  - Immune thrombocytopenic purpura [Unknown]
  - Pulmonary embolism [Not Recovered/Not Resolved]
  - Blepharospasm [Not Recovered/Not Resolved]
  - Red blood cell count decreased [Recovered/Resolved]
  - Flushing [Not Recovered/Not Resolved]
  - Headache [Not Recovered/Not Resolved]
  - Intracardiac thrombus [Not Recovered/Not Resolved]
  - Thrombosis [Not Recovered/Not Resolved]
  - Joint stiffness [Recovered/Resolved]
  - Contusion [Not Recovered/Not Resolved]
  - Urine ketone body present [Recovered/Resolved]
  - Bilirubin urine present [Recovered/Resolved]
  - Activated partial thromboplastin time shortened [Recovered/Resolved]
  - Carbon dioxide decreased [Recovered/Resolved]
  - Lethargy [Not Recovered/Not Resolved]
  - Glomerular filtration rate decreased [Unknown]
  - Pain [Not Recovered/Not Resolved]
  - Deep vein thrombosis [Not Recovered/Not Resolved]
  - Jaundice [Not Recovered/Not Resolved]
  - Blood chloride decreased [Recovered/Resolved]
  - Muscle spasms [Recovered/Resolved]
  - Hypertension [Recovered/Resolved]
  - Lymphocyte count decreased [Not Recovered/Not Resolved]
  - Musculoskeletal stiffness [Recovered/Resolved]
  - Mean cell haemoglobin increased [Not Recovered/Not Resolved]
  - Haemoglobin decreased [Recovered/Resolved]
  - Influenza [Not Recovered/Not Resolved]
  - Head discomfort [Not Recovered/Not Resolved]
  - Tachycardia [Not Recovered/Not Resolved]
  - Nausea [Recovered/Resolved]
  - Haemolytic anaemia [Not Recovered/Not Resolved]
  - Bladder spasm [Recovered/Resolved]
  - Anion gap increased [Recovered/Resolved]
  - Urine leukocyte esterase positive [Recovered/Resolved]
  - Dizziness [Not Recovered/Not Resolved]
  - Chromaturia [Recovered/Resolved]
  - Arterial disorder [Not Recovered/Not Resolved]
  - Mean cell volume increased [Recovered/Resolved]
  - Gamma-glutamyltransferase increased [Recovered/Resolved]
  - Nasopharyngitis [Not Recovered/Not Resolved]
  - Neutrophil count decreased [Recovered/Resolved]
  - White blood cell count decreased [Recovered/Resolved]
  - Infusion site erythema [Recovered/Resolved]

NARRATIVE: CASE EVENT DATE: 201704
